FAERS Safety Report 4622362-2 (Version None)
Quarter: 2005Q1

REPORT INFORMATION
  Report Type: 
  Country: None (occurrence: None)
  Receive Date: 20050328
  Receipt Date: 20050314
  Transmission Date: 20050727
  Serious: Yes (Hospitalization, Other)
  Sender: FDA-Public Use
  Company Number: 2005042062

PATIENT
  Age: 6 Year
  Sex: Male
  Weight: 19 kg

DRUGS (1)
  1. GENOTROPIN [Suspect]
     Indication: HYPOPITUITARISM
     Dosage: 0.6 MG (0.6 MG DAILY) SUBCUTANEOUS
     Route: 058
     Dates: start: 20050212, end: 20050224

REACTIONS (3)
  - ANEURYSM ARTERIOVENOUS [None]
  - BRAIN NEOPLASM [None]
  - CEREBRAL HAEMANGIOMA [None]
